FAERS Safety Report 13158133 (Version 1)
Quarter: 2017Q1

REPORT INFORMATION
  Report Type: Other
  Country: DK (occurrence: DK)
  Receive Date: 20170127
  Receipt Date: 20170127
  Transmission Date: 20170428
  Serious: Yes (Other)
  Sender: FDA-Public Use
  Company Number: DK-LUPIN PHARMACEUTICALS INC.-2017-00370

PATIENT
  Sex: Female

DRUGS (1)
  1. QUETIAPINE. [Suspect]
     Active Substance: QUETIAPINE
     Indication: SEXUAL ABUSE
     Route: 065

REACTIONS (4)
  - Lethargy [Unknown]
  - Vomiting [Unknown]
  - Drug interaction [Unknown]
  - Somnolence [Unknown]
